FAERS Safety Report 5358227-0 (Version None)
Quarter: 2007Q2

REPORT INFORMATION
  Report Type: 
  Country: None (occurrence: None)
  Receive Date: 20070530
  Receipt Date: 20061027
  Transmission Date: 20071010
  Serious: Yes (Hospitalization, Other)
  Sender: FDA-Public Use
  Company Number: US200603004090

PATIENT
  Age: 47 Year
  Sex: Male
  Weight: 102 kg

DRUGS (11)
  1. ZYPREXA [Suspect]
     Indication: DEPRESSION
     Dosage: 15 MG
     Dates: start: 19990601, end: 20041201
  2. ABILIFY [Concomitant]
  3. SEROQUEL [Concomitant]
  4. RISPERDAL [Concomitant]
  5. THORAZINE [Concomitant]
  6. HALDOL SOLUTAB [Concomitant]
  7. TEGRETOL [Concomitant]
  8. PAXIL [Concomitant]
  9. ZOLOFT [Concomitant]
  10. EFFEXOR [Concomitant]
  11. INDERAL [Concomitant]

REACTIONS (4)
  - BLOOD CHOLESTEROL INCREASED [None]
  - DIABETES MELLITUS [None]
  - DIABETIC KETOACIDOSIS [None]
  - METABOLIC DISORDER [None]
